FAERS Safety Report 10598832 (Version 1)
Quarter: 2014Q4

REPORT INFORMATION
  Report Type: Report from Study
  Country: CA (occurrence: CA)
  Receive Date: 20141121
  Receipt Date: 20141121
  Transmission Date: 20150529
  Serious: Yes (Death, Hospitalization)
  Sender: FDA-Public Use
  Company Number: CA-BRISTOL-MYERS SQUIBB COMPANY-21601117

PATIENT
  Age: 68 Year
  Sex: Female

DRUGS (12)
  1. SILICA [Concomitant]
     Active Substance: SILICON DIOXIDE
  2. METHOTREXATE [Concomitant]
     Active Substance: METHOTREXATE
  3. LORAZEPAM. [Concomitant]
     Active Substance: LORAZEPAM
  4. METFORMIN [Concomitant]
     Active Substance: METFORMIN HYDROCHLORIDE
  5. VITAMIN D [Concomitant]
     Active Substance: CHOLECALCIFEROL
  6. NOVO-QUININE [Concomitant]
  7. ADALAT [Concomitant]
     Active Substance: NIFEDIPINE
  8. MICARDIS [Concomitant]
     Active Substance: TELMISARTAN
  9. ORENCIA [Suspect]
     Active Substance: ABATACEPT
     Indication: RHEUMATOID ARTHRITIS
     Route: 042
     Dates: start: 20120927, end: 20141029
  10. FOLIC ACID. [Concomitant]
     Active Substance: FOLIC ACID
  11. PANTOPRAZOLE [Concomitant]
     Active Substance: PANTOPRAZOLE SODIUM
  12. TYLENOL WITH CODEINE [Concomitant]
     Active Substance: ACETAMINOPHEN\CODEINE PHOSPHATE

REACTIONS (1)
  - Myocardial infarction [Fatal]

NARRATIVE: CASE EVENT DATE: 201411
